FAERS Safety Report 18066718 (Version 1)
Quarter: 2020Q3

REPORT INFORMATION
  Report Type: Spontaneous
  Country: US (occurrence: US)
  Receive Date: 20200724
  Receipt Date: 20200724
  Transmission Date: 20201103
  Serious: Yes (Death, Life-Threatening, Hospitalization)
  Sender: FDA-Public Use
  Company Number: US-FRESENIUS KABI-FK202007542

PATIENT
  Age: 54 Year
  Sex: Female
  Weight: 92.3 kg

DRUGS (123)
  1. FLUDARABINE [Suspect]
     Active Substance: FLUDARABINE PHOSPHATE
     Indication: PLASMA CELL MYELOMA
     Route: 042
     Dates: start: 20200122, end: 20200124
  2. CYCLOPHOSPHAMIDE. [Suspect]
     Active Substance: CYCLOPHOSPHAMIDE
     Indication: PLASMA CELL MYELOMA
     Dosage: 550 MG, ON DAY 1, 8, 15)
     Route: 048
     Dates: start: 20191213, end: 20191227
  3. PARACETAMOL [Concomitant]
     Active Substance: ACETAMINOPHEN
     Indication: PYREXIA
     Route: 048
     Dates: start: 20200121, end: 20200202
  4. POTASSIUM CHLORIDE. [Concomitant]
     Active Substance: POTASSIUM CHLORIDE
     Route: 048
     Dates: start: 20200416
  5. TRAMADOL. [Concomitant]
     Active Substance: TRAMADOL
     Route: 048
     Dates: start: 20200123, end: 20200202
  6. MORPHINE [Concomitant]
     Active Substance: MORPHINE
     Route: 042
     Dates: start: 20200112, end: 20200112
  7. SEVELAMER [Concomitant]
     Active Substance: SEVELAMER
     Indication: HYPERPHOSPHATAEMIA
     Route: 048
     Dates: start: 20200121, end: 20200125
  8. POTASSIUM PHOSPHATE DIBASIC/POTASSIUM PHOSPHATE MONOBASIC [Concomitant]
     Active Substance: POTASSIUM PHOSPHATE, DIBASIC\POTASSIUM PHOSPHATE, MONOBASIC
     Indication: HYPOPHOSPHATAEMIA
     Route: 042
     Dates: start: 20200131, end: 20200201
  9. MAGNESIUM OXIDE. [Concomitant]
     Active Substance: MAGNESIUM OXIDE
     Indication: ROUTINE HEALTH MAINTENANCE
     Route: 048
     Dates: start: 20200111, end: 20200111
  10. FUROSEMIDE. [Concomitant]
     Active Substance: FUROSEMIDE
     Indication: HAEMODIALYSIS
     Route: 042
     Dates: start: 20200127, end: 20200127
  11. ALLOPURINOL. [Concomitant]
     Active Substance: ALLOPURINOL
     Indication: PROPHYLAXIS
     Route: 048
     Dates: start: 20200121, end: 20200122
  12. SODIUM LACTATE/POTASSIUM CHLORIDE/CALCIUM CHLORIDE [Concomitant]
     Active Substance: CALCIUM CHLORIDE\POTASSIUM CHLORIDE\SODIUM LACTATE
     Indication: SURGERY
     Route: 042
     Dates: start: 20200107, end: 20200107
  13. HYDROMORPHONE [Concomitant]
     Active Substance: HYDROMORPHONE
     Indication: ANAESTHESIA
     Dosage: X4 DOSES
     Route: 042
     Dates: start: 20200107, end: 20200107
  14. ALBUMIN HUMAN [Concomitant]
     Active Substance: ALBUMIN HUMAN
     Indication: PROPHYLAXIS
     Route: 042
     Dates: start: 20200107, end: 20200107
  15. BUPIVACAINE. [Concomitant]
     Active Substance: BUPIVACAINE
     Indication: ANAESTHESIA
     Route: 042
     Dates: start: 20200107, end: 20200107
  16. TEMAZEPAM. [Concomitant]
     Active Substance: TEMAZEPAM
     Indication: INSOMNIA
     Route: 048
     Dates: start: 20190821
  17. DEXAMETHASONE. [Concomitant]
     Active Substance: DEXAMETHASONE
     Indication: HYPOXIA
     Route: 042
     Dates: start: 20200204, end: 20200204
  18. CALCIUM GLUCONATE. [Concomitant]
     Active Substance: CALCIUM GLUCONATE
     Indication: CARDIAC ARREST
     Route: 042
     Dates: start: 20200202, end: 20200202
  19. ALPRAZOLAM. [Concomitant]
     Active Substance: ALPRAZOLAM
     Route: 048
     Dates: start: 20200121, end: 20200121
  20. TRAMADOL. [Concomitant]
     Active Substance: TRAMADOL
     Indication: BACK PAIN
     Route: 048
     Dates: start: 20200103
  21. MORPHINE [Concomitant]
     Active Substance: MORPHINE
     Indication: BACK PAIN
     Route: 042
     Dates: start: 20200107, end: 20200112
  22. MAGNESIUM HYDROXIDE/ALGELDRATE/DIMETICONE [Concomitant]
     Indication: GASTROOESOPHAGEAL REFLUX DISEASE
     Dosage: DOSE: X 2 DOSES, 2 IN 1 D
     Route: 048
  23. CEFAZOLIN [Concomitant]
     Active Substance: CEFAZOLIN
     Indication: PROPHYLAXIS
     Route: 042
     Dates: start: 20200107, end: 20200107
  24. CEFAZOLIN [Concomitant]
     Active Substance: CEFAZOLIN
     Route: 042
     Dates: start: 20200107, end: 20200108
  25. FENTANYL. [Concomitant]
     Active Substance: FENTANYL
     Indication: ANAESTHESIA
     Dosage: DOSE: 50 MICROGRAMS, ONCE X 2 DOSES
     Route: 042
     Dates: start: 20200107, end: 20200107
  26. LORAZEPAM. [Concomitant]
     Active Substance: LORAZEPAM
     Indication: BONE MARROW DISORDER
     Route: 042
     Dates: start: 20200115, end: 20200115
  27. MIDAZOLAM. [Concomitant]
     Active Substance: MIDAZOLAM
     Indication: ANAESTHESIA
  28. CYCLOPHOSPHAMIDE. [Suspect]
     Active Substance: CYCLOPHOSPHAMIDE
     Route: 042
     Dates: start: 20200122, end: 20200124
  29. PARACETAMOL [Concomitant]
     Active Substance: ACETAMINOPHEN
     Indication: TRANSFUSION
     Dosage: 500?650 MILLIGRAMS
     Route: 048
     Dates: start: 20200127, end: 20200229
  30. BISACODYL. [Concomitant]
     Active Substance: BISACODYL
     Route: 048
     Dates: start: 20200121, end: 20200202
  31. PROMETHAZINE HYDROCHLORIDE/CHLOROFORM/SODIUM CITRATE/CITRIC ACID/DEXTROMETHORPHAN HYDROBROMIDE/SULFO [Concomitant]
     Indication: NAUSEA
     Route: 042
     Dates: start: 20200122, end: 20200211
  32. POTASSIUM CHLORIDE. [Concomitant]
     Active Substance: POTASSIUM CHLORIDE
     Indication: HYPOKALAEMIA
     Route: 048
     Dates: start: 20200110, end: 20200112
  33. MORPHINE [Concomitant]
     Active Substance: MORPHINE
     Route: 048
     Dates: start: 20200112
  34. PLATELETS [Concomitant]
     Active Substance: HUMAN PLATELET, ALLOGENIC
     Dosage: DOSE: 1 UNIT
     Route: 042
     Dates: start: 20200128, end: 20200128
  35. RED BLOOD CELLS [Concomitant]
     Active Substance: HUMAN RED BLOOD CELL
     Dosage: DOSE: 4 UNITS ONCE
     Route: 042
     Dates: start: 20200131, end: 20200131
  36. DIPHENHYDRAMINE. [Concomitant]
     Active Substance: DIPHENHYDRAMINE
     Indication: PREMEDICATION
     Route: 048
     Dates: start: 20200106, end: 20200106
  37. SODIUM CHLORIDE. [Concomitant]
     Active Substance: SODIUM CHLORIDE
     Indication: ACUTE KIDNEY INJURY
     Dosage: DOSE: 30ML/MIN, CONTINUOUS
     Route: 042
     Dates: start: 20200121, end: 20200205
  38. SODIUM CHLORIDE. [Concomitant]
     Active Substance: SODIUM CHLORIDE
     Route: 042
     Dates: start: 20200211, end: 20200211
  39. LEVOFLOXACIN. [Concomitant]
     Active Substance: LEVOFLOXACIN
     Indication: FEBRILE NEUTROPENIA
     Route: 048
     Dates: start: 20200127, end: 20200127
  40. LIDOCAINE. [Concomitant]
     Active Substance: LIDOCAINE
     Indication: BACK PAIN
     Route: 042
  41. ACICLOVIR SODIUM [Concomitant]
     Active Substance: ACYCLOVIR SODIUM
     Route: 048
     Dates: start: 20200204
  42. PROPOFOL. [Concomitant]
     Active Substance: PROPOFOL
     Indication: ANAESTHESIA
     Route: 042
     Dates: start: 20200107, end: 20200107
  43. ESOMEPRAZOLE. [Concomitant]
     Active Substance: ESOMEPRAZOLE MAGNESIUM
     Indication: GASTROOESOPHAGEAL REFLUX DISEASE
     Route: 048
     Dates: start: 20200529
  44. SALBUTAMOL SULFATE [Concomitant]
     Active Substance: ALBUTEROL SULFATE
     Indication: ASTHMA
     Dosage: DOSE: 2.5 MG/0.5 ML, EVERY 4?6 HR PRN
     Route: 065
  45. ALPRAZOLAM. [Concomitant]
     Active Substance: ALPRAZOLAM
     Indication: ANXIETY
     Route: 048
     Dates: start: 20190821
  46. ALPRAZOLAM. [Concomitant]
     Active Substance: ALPRAZOLAM
     Indication: PREMEDICATION
     Route: 048
     Dates: start: 20200121, end: 20200202
  47. POTASSIUM CHLORIDE. [Concomitant]
     Active Substance: POTASSIUM CHLORIDE
     Route: 042
     Dates: start: 20200128, end: 20200129
  48. POTASSIUM CHLORIDE. [Concomitant]
     Active Substance: POTASSIUM CHLORIDE
     Route: 048
     Dates: start: 20200129
  49. POTASSIUM CHLORIDE. [Concomitant]
     Active Substance: POTASSIUM CHLORIDE
     Route: 042
     Dates: start: 20200131
  50. ONDANSETRON [Concomitant]
     Active Substance: ONDANSETRON
     Indication: PROPHYLAXIS
     Route: 042
     Dates: start: 20200107, end: 20200207
  51. RED BLOOD CELLS [Concomitant]
     Active Substance: HUMAN RED BLOOD CELL
     Dosage: DOSE: 1 UNITS ONCE
     Route: 042
     Dates: start: 20200124, end: 20200124
  52. DIPHENHYDRAMINE. [Concomitant]
     Active Substance: DIPHENHYDRAMINE
     Route: 048
     Dates: start: 20200127, end: 20200127
  53. SODIUM CHLORIDE. [Concomitant]
     Active Substance: SODIUM CHLORIDE
     Indication: CARDIAC ARREST
     Route: 042
     Dates: start: 20200122, end: 20200124
  54. LEVOFLOXACIN. [Concomitant]
     Active Substance: LEVOFLOXACIN
     Route: 048
     Dates: start: 20200206, end: 20200206
  55. MAGNESIUM OXIDE. [Concomitant]
     Active Substance: MAGNESIUM OXIDE
     Route: 048
     Dates: start: 20200129, end: 20200129
  56. MAGNESIUM SULFATE. [Concomitant]
     Active Substance: MAGNESIUM SULFATE
     Route: 042
     Dates: start: 20200128, end: 20200130
  57. FUROSEMIDE. [Concomitant]
     Active Substance: FUROSEMIDE
     Indication: OEDEMA PERIPHERAL
     Route: 042
     Dates: start: 20200124, end: 20200124
  58. ACICLOVIR SODIUM [Concomitant]
     Active Substance: ACYCLOVIR SODIUM
     Route: 048
     Dates: start: 20200121, end: 20200203
  59. MORPHINE SULFATE. [Concomitant]
     Active Substance: MORPHINE SULFATE
     Route: 048
     Dates: start: 20200112
  60. DAPSONE. [Concomitant]
     Active Substance: DAPSONE
     Indication: ANTIBIOTIC PROPHYLAXIS
     Route: 048
     Dates: start: 20200123, end: 20200206
  61. HYDROMORPHONE [Concomitant]
     Active Substance: HYDROMORPHONE
     Route: 042
     Dates: start: 20200115, end: 20200115
  62. SENNOSIDE A+B/DOCUSATE SODIUM [Concomitant]
     Indication: CONSTIPATION
     Dosage: 1 TABLET TWICE DAILY, 2 IN 1 D
     Route: 048
     Dates: start: 20200106, end: 20200110
  63. PHENYLEPHRINE [Concomitant]
     Active Substance: PHENYLEPHRINE HYDROCHLORIDE
     Indication: ANAESTHESIA
     Route: 042
     Dates: start: 20200107, end: 20200107
  64. DEXAMETHASONE. [Concomitant]
     Active Substance: DEXAMETHASONE
     Indication: PYREXIA
     Route: 042
     Dates: start: 20200131, end: 20200131
  65. DEXAMETHASONE. [Concomitant]
     Active Substance: DEXAMETHASONE
     Indication: HYPOTENSION
     Route: 042
     Dates: start: 20200201, end: 20200206
  66. PROMETHAZINE HYDROCHLORIDE/CHLOROFORM/SODIUM CITRATE/CITRIC ACID/DEXTROMETHORPHAN HYDROBROMIDE/SULFO [Concomitant]
     Route: 048
     Dates: start: 20200129, end: 20200129
  67. CALCIUM CARBONATE/SIMETICONE [Concomitant]
     Indication: PRODUCT USED FOR UNKNOWN INDICATION
     Dosage: DOSE: 750 MG?80 MG, 1 IN 4 HR
     Route: 048
  68. MORPHINE [Concomitant]
     Active Substance: MORPHINE
     Dosage: 0.5 TO 1 TABLET, EVERY 4 TO 6 HOURS
     Route: 048
  69. PLATELETS [Concomitant]
     Active Substance: HUMAN PLATELET, ALLOGENIC
     Dosage: DOSE: 1 UNIT
     Route: 042
     Dates: start: 20200130, end: 20200130
  70. DIPHENHYDRAMINE. [Concomitant]
     Active Substance: DIPHENHYDRAMINE
     Route: 048
     Dates: start: 20200127, end: 20200127
  71. POVIDONE?IODINE. [Concomitant]
     Active Substance: POVIDONE-IODINE
     Indication: PROPHYLAXIS
     Route: 048
     Dates: start: 20200121, end: 20200211
  72. ACICLOVIR SODIUM [Concomitant]
     Active Substance: ACYCLOVIR SODIUM
     Indication: ANTIVIRAL PROPHYLAXIS
     Route: 048
     Dates: start: 20191017, end: 20200120
  73. ACETYLSALICYLIC ACID [Concomitant]
     Active Substance: ASPIRIN
     Indication: ANAESTHESIA
     Route: 048
     Dates: start: 20200109, end: 20200112
  74. SENNOSIDE A+B/DOCUSATE SODIUM [Concomitant]
     Dosage: 2 TABLETS TWICE DAILY, 2 IN 1 D
     Route: 048
     Dates: start: 20200110, end: 20200112
  75. MIDAZOLAM. [Concomitant]
     Active Substance: MIDAZOLAM
     Indication: BONE MARROW DISORDER
     Route: 042
     Dates: start: 20200107, end: 20200107
  76. DEXAMETHASONE. [Concomitant]
     Active Substance: DEXAMETHASONE
     Indication: PLASMA CELL MYELOMA
     Route: 042
     Dates: start: 20200107, end: 20200107
  77. DEXAMETHASONE. [Concomitant]
     Active Substance: DEXAMETHASONE
     Indication: ANAESTHESIA
  78. FILGRASTIM [Concomitant]
     Active Substance: FILGRASTIM
     Indication: NEUTROPHIL COUNT DECREASED
     Route: 058
  79. NO DRUG NAME [Suspect]
     Active Substance: UNSPECIFIED INGREDIENT
     Indication: PLASMA CELL MYELOMA
     Dosage: DOSE: 384.56 X 10 6 CAR PLUS T CELLS
     Route: 042
     Dates: start: 20200127, end: 20200127
  80. PARACETAMOL [Concomitant]
     Active Substance: ACETAMINOPHEN
     Indication: BODY TEMPERATURE
     Route: 048
     Dates: start: 20200108, end: 20200108
  81. ALPRAZOLAM. [Concomitant]
     Active Substance: ALPRAZOLAM
     Indication: BONE MARROW DISORDER
     Route: 048
     Dates: start: 20200115, end: 20200115
  82. IBUPROFEN. [Concomitant]
     Active Substance: IBUPROFEN
     Indication: PRODUCT USED FOR UNKNOWN INDICATION
     Route: 048
  83. MACROGOL 3350 [Concomitant]
     Active Substance: POLYETHYLENE GLYCOL 3350
     Indication: CONSTIPATION
     Route: 048
     Dates: start: 20200106, end: 20200112
  84. SODIUM CHLORIDE. [Concomitant]
     Active Substance: SODIUM CHLORIDE
     Indication: ACUTE KIDNEY INJURY
     Route: 042
     Dates: start: 20200121, end: 20200121
  85. SODIUM CHLORIDE. [Concomitant]
     Active Substance: SODIUM CHLORIDE
     Indication: FLUID REPLACEMENT
     Route: 042
     Dates: start: 20200127, end: 20200127
  86. LIDOCAINE. [Concomitant]
     Active Substance: LIDOCAINE
     Indication: ANAESTHESIA
     Dosage: 1 PATCH, 1 IN 1 DAY, TD
     Route: 065
     Dates: start: 20200129, end: 20200206
  87. MAGNESIUM SULFATE. [Concomitant]
     Active Substance: MAGNESIUM SULFATE
     Indication: HYPOMAGNESAEMIA
     Route: 042
     Dates: start: 20200124, end: 20200124
  88. MAGNESIUM SULFATE. [Concomitant]
     Active Substance: MAGNESIUM SULFATE
     Route: 042
     Dates: start: 20200130, end: 20200130
  89. FUROSEMIDE. [Concomitant]
     Active Substance: FUROSEMIDE
     Indication: ACUTE KIDNEY INJURY
  90. MORPHINE SULFATE. [Concomitant]
     Active Substance: MORPHINE SULFATE
     Indication: BACK PAIN
     Route: 048
     Dates: start: 20200112, end: 20200112
  91. SENNOSIDE A+B/DOCUSATE SODIUM [Concomitant]
     Dosage: 2 TABLETS TWICE DAILY, 2 IN 1 D
     Route: 048
     Dates: start: 20200128, end: 20200202
  92. FLUCONAZOLE. [Concomitant]
     Active Substance: FLUCONAZOLE
     Route: 048
     Dates: start: 20200128, end: 20200201
  93. CALCIUM GLUCONATE. [Concomitant]
     Active Substance: CALCIUM GLUCONATE
     Indication: HYPOCALCAEMIA
     Dosage: DOSE: X 2 DOSES
     Route: 042
     Dates: start: 20200107, end: 20200107
  94. CALCIUM GLUCONATE. [Concomitant]
     Active Substance: CALCIUM GLUCONATE
     Indication: ANAESTHESIA
     Route: 042
     Dates: start: 20200209, end: 20200209
  95. CALCIUM GLUCONATE. [Concomitant]
     Active Substance: CALCIUM GLUCONATE
     Route: 042
     Dates: start: 20200211, end: 20200211
  96. FLUDARABINE [Suspect]
     Active Substance: FLUDARABINE PHOSPHATE
     Route: 042
  97. FAMOTIDINE. [Concomitant]
     Active Substance: FAMOTIDINE
     Indication: ANAESTHESIA
     Route: 048
     Dates: start: 20191010
  98. FAMOTIDINE. [Concomitant]
     Active Substance: FAMOTIDINE
     Indication: GASTROOESOPHAGEAL REFLUX DISEASE
     Route: 042
     Dates: start: 20190107
  99. ESOMEPRAZOLE MAGNESIUM. [Concomitant]
     Active Substance: ESOMEPRAZOLE MAGNESIUM
     Route: 048
  100. SALBUTAMOL SULFATE [Concomitant]
     Active Substance: ALBUTEROL SULFATE
     Indication: PRODUCT USED FOR UNKNOWN INDICATION
     Dosage: 90 MCG/INH; 2 PUFF, 4 IN 1 D
  101. ONDANSETRON [Concomitant]
     Active Substance: ONDANSETRON
     Indication: ANAESTHESIA
     Route: 048
     Dates: start: 20200121, end: 20200211
  102. ONDANSETRON [Concomitant]
     Active Substance: ONDANSETRON
     Route: 048
     Dates: start: 20200130, end: 20200202
  103. PLATELETS [Concomitant]
     Active Substance: HUMAN PLATELET, ALLOGENIC
     Indication: PLATELET COUNT DECREASED
     Dosage: DOSE: 1 UNIT
     Route: 042
     Dates: start: 20200122, end: 20200122
  104. SODIUM CHLORIDE. [Concomitant]
     Active Substance: SODIUM CHLORIDE
     Route: 042
     Dates: start: 20200122, end: 20200122
  105. LEVOFLOXACIN. [Concomitant]
     Active Substance: LEVOFLOXACIN
     Dosage: 1 IN 48 HOURS
     Route: 050
     Dates: start: 20200208, end: 20200208
  106. MAGNESIUM OXIDE. [Concomitant]
     Active Substance: MAGNESIUM OXIDE
     Indication: HYPOMAGNESAEMIA
     Route: 048
     Dates: start: 20200110, end: 20200110
  107. OXYCODONE [Concomitant]
     Active Substance: OXYCODONE
     Indication: BACK PAIN
     Route: 048
     Dates: start: 20200106, end: 20200113
  108. TRANEXAMIC ACID. [Concomitant]
     Active Substance: TRANEXAMIC ACID
     Indication: PROPHYLAXIS
     Route: 042
     Dates: start: 20200107, end: 20200107
  109. DEXAMETHASONE. [Concomitant]
     Active Substance: DEXAMETHASONE
     Indication: NEUROTOXICITY
     Route: 048
     Dates: start: 20191213, end: 20191227
  110. PARACETAMOL [Concomitant]
     Active Substance: ACETAMINOPHEN
     Indication: PLASMA CELL MYELOMA
     Route: 048
  111. BISACODYL. [Concomitant]
     Active Substance: BISACODYL
     Indication: CONSTIPATION
     Route: 048
     Dates: start: 20171106
  112. ESOMEPRAZOLE MAGNESIUM. [Concomitant]
     Active Substance: ESOMEPRAZOLE MAGNESIUM
     Indication: GASTROOESOPHAGEAL REFLUX DISEASE
     Route: 048
     Dates: start: 20190529
  113. ONDANSETRON [Concomitant]
     Active Substance: ONDANSETRON
     Indication: NAUSEA
     Route: 048
     Dates: start: 20200107, end: 20200107
  114. ONDANSETRON [Concomitant]
     Active Substance: ONDANSETRON
     Indication: PREMEDICATION
     Route: 042
     Dates: start: 20200122, end: 20200124
  115. MACROGOL 3350 [Concomitant]
     Active Substance: POLYETHYLENE GLYCOL 3350
     Route: 048
     Dates: start: 20200121, end: 20200202
  116. RED BLOOD CELLS [Concomitant]
     Active Substance: HUMAN RED BLOOD CELL
     Indication: ANAEMIA
     Dosage: DOSE: 4 UNITS CONTINOUS
     Route: 042
     Dates: start: 20200106, end: 20200108
  117. RED BLOOD CELLS [Concomitant]
     Active Substance: HUMAN RED BLOOD CELL
     Indication: PROPHYLAXIS
     Dosage: DOSE: 2 UNITS ONCE
     Route: 042
     Dates: start: 20200121, end: 20200121
  118. DIPHENHYDRAMINE. [Concomitant]
     Active Substance: DIPHENHYDRAMINE
     Route: 048
     Dates: start: 20200108, end: 20200108
  119. DIPHENHYDRAMINE. [Concomitant]
     Active Substance: DIPHENHYDRAMINE
     Route: 048
     Dates: start: 20200121, end: 20200203
  120. LEVOFLOXACIN. [Concomitant]
     Active Substance: LEVOFLOXACIN
     Route: 048
     Dates: start: 20200128, end: 20200130
  121. ALLOPURINOL. [Concomitant]
     Active Substance: ALLOPURINOL
     Route: 048
     Dates: start: 20200123, end: 20200131
  122. SODIUM LACTATE/POTASSIUM CHLORIDE/CALCIUM CHLORIDE [Concomitant]
     Active Substance: CALCIUM CHLORIDE\POTASSIUM CHLORIDE\SODIUM LACTATE
     Indication: ANAESTHESIA
     Dosage: CONTINOUS
     Route: 042
     Dates: start: 20200107, end: 20200107
  123. FLUCONAZOLE. [Concomitant]
     Active Substance: FLUCONAZOLE
     Indication: PROPHYLAXIS
     Route: 048
     Dates: start: 20200127, end: 20200127

REACTIONS (2)
  - Fungal sepsis [Fatal]
  - Neurotoxicity [Not Recovered/Not Resolved]

NARRATIVE: CASE EVENT DATE: 20200201
